FAERS Safety Report 9734250 (Version 2)
Quarter: 2013Q4

REPORT INFORMATION
  Report Type: Spontaneous
  Country: CA (occurrence: CA)
  Receive Date: 20131205
  Receipt Date: 20131205
  Transmission Date: 20140711
  Serious: Yes (Hospitalization, Other)
  Sender: FDA-Public Use
  Company Number: CA-AMGEN-CANSP2012026062

PATIENT
  Age: 58 Year
  Sex: Female

DRUGS (4)
  1. ENBREL [Suspect]
     Indication: RHEUMATOID ARTHRITIS
     Dosage: 50 MG, QWK
     Route: 065
     Dates: start: 20061013, end: 20131121
  2. VITAMIN D                          /00107901/ [Concomitant]
     Dosage: UNK
  3. COENZYME Q10 [Concomitant]
     Dosage: UNK
  4. CELEBREX [Concomitant]
     Dosage: UNK UNK, AS NECESSARY

REACTIONS (3)
  - Breast cancer [Recovered/Resolved]
  - Condition aggravated [Not Recovered/Not Resolved]
  - Therapeutic response decreased [Not Recovered/Not Resolved]
